FAERS Safety Report 5090455-4 (Version None)
Quarter: 2006Q3

REPORT INFORMATION
  Report Type: 
  Country: None (occurrence: None)
  Receive Date: 20060828
  Receipt Date: 20060503
  Transmission Date: 20061208
  Serious: No
  Sender: FDA-Public Use
  Company Number: US017091

PATIENT
  Age: 59 Year
  Sex: Female
  Weight: 72.7 kg

DRUGS (7)
  1. WELLBUTRIN XL [Suspect]
     Indication: DEPRESSION
     Dosage: 300MG PER DAY
     Route: 048
     Dates: start: 20050901, end: 20060307
  2. ACTIQ [Suspect]
     Indication: OSTEOARTHRITIS
     Dosage: 200MG FOUR TIMES PER DAY
     Route: 002
     Dates: start: 20040901
  3. DURAGESIC-100 [Suspect]
     Indication: OSTEOARTHRITIS
     Dosage: 100MCG TWENTY FOUR TIMES PER DAY
     Route: 062
     Dates: start: 20030101
  4. EFFEXOR XR [Suspect]
     Indication: DEPRESSION
     Dosage: 300MG PER DAY
     Route: 048
     Dates: start: 20030101, end: 20051101
  5. CYMBALTA [Concomitant]
     Dates: start: 20051101
  6. NORVASC [Concomitant]
  7. TRAZODONE HCL [Concomitant]
     Dates: start: 20000101

REACTIONS (2)
  - DIZZINESS [None]
  - NAUSEA [None]
